FAERS Safety Report 18355810 (Version 2)
Quarter: 2020Q4

REPORT INFORMATION
  Report Type: Spontaneous
  Country: DE (occurrence: DE)
  Receive Date: 20201007
  Receipt Date: 20201230
  Transmission Date: 20210114
  Serious: Yes (Hospitalization)
  Sender: FDA-Public Use
  Company Number: DE-ROCHE-2691307

PATIENT
  Sex: Female

DRUGS (1)
  1. XOLAIR [Suspect]
     Active Substance: OMALIZUMAB
     Indication: PRODUCT USED FOR UNKNOWN INDICATION
     Route: 065
     Dates: start: 2017

REACTIONS (7)
  - Fatigue [Unknown]
  - Pharyngeal swelling [Recovering/Resolving]
  - Aphasia [Unknown]
  - Asthenia [Unknown]
  - Cognitive disorder [Unknown]
  - Nervous system disorder [Unknown]
  - Disturbance in attention [Unknown]
